FAERS Safety Report 12988157 (Version 1)
Quarter: 2016Q4

REPORT INFORMATION
  Report Type: Spontaneous
  Country: US (occurrence: US)
  Receive Date: 20161130
  Receipt Date: 20161130
  Transmission Date: 20170207
  Serious: No
  Sender: FDA-Public Use
  Company Number: US-ELI_LILLY_AND_COMPANY-US201611004020

PATIENT
  Sex: Male
  Weight: 24.49 kg

DRUGS (2)
  1. STRATTERA [Suspect]
     Active Substance: ATOMOXETINE HYDROCHLORIDE
     Indication: OPPOSITIONAL DEFIANT DISORDER
  2. STRATTERA [Suspect]
     Active Substance: ATOMOXETINE HYDROCHLORIDE
     Indication: ATTENTION DEFICIT/HYPERACTIVITY DISORDER
     Dosage: 18 MG, OTHER
     Route: 065
     Dates: start: 20161019

REACTIONS (5)
  - Somnolence [Unknown]
  - Anger [Unknown]
  - Aggression [Unknown]
  - Tic [Unknown]
  - Intentional product misuse [Unknown]
